FAERS Safety Report 6736740-9 (Version None)
Quarter: 2010Q2

REPORT INFORMATION
  Report Type: 
  Country: None (occurrence: None)
  Receive Date: 20100521
  Receipt Date: 20100518
  Transmission Date: 20101027
  Serious: Yes (Death)
  Sender: FDA-Public Use
  Company Number: PHHY2010MX07215

PATIENT
  Age: 66 Year
  Sex: Male

DRUGS (5)
  1. DIOVAN [Suspect]
     Indication: HYPERTENSION
     Dosage: 1 TABLET (80 MG) DAILY
     Route: 048
     Dates: start: 19770101
  2. AMARYL [Concomitant]
     Indication: DIABETES MELLITUS
     Dosage: 1 TABLET PER DAY
     Dates: start: 20060101
  3. PROPRANOLOL [Concomitant]
     Indication: HYPERTENSION
     Dosage: 1 TABLET PER DAY
     Dates: start: 20060101
  4. CRESTOR [Concomitant]
     Indication: BLOOD CHOLESTEROL
     Dosage: 1 TABLET PER DAY
     Dates: start: 20060101
  5. ASPIRIN [Concomitant]

REACTIONS (3)
  - CARDIAC ARREST [None]
  - INFARCTION [None]
  - PULMONARY OEDEMA [None]
